FAERS Safety Report 8924593 (Version 1)
Quarter: 2012Q4

REPORT INFORMATION
  Report Type: 
  Country: US (occurrence: None)
  Receive Date: 20121121
  Receipt Date: 20121121
  Transmission Date: 20130627
  Serious: Yes (Hospitalization)
  Sender: FDA-Public Use
  Company Number: None

PATIENT
  Sex: Male
  Weight: 76.9 kg

DRUGS (1)
  1. VINCRISTINE SULFATE [Suspect]
     Dosage: day 50 given on 10/17/2012 while patient was hospitalized for neutropenic fever.

REACTIONS (6)
  - Hypokalaemia [None]
  - Dysphonia [None]
  - Asthenia [None]
  - Febrile neutropenia [None]
  - Pain in extremity [None]
  - Walking aid user [None]
